FAERS Safety Report 5724640-2 (Version None)
Quarter: 2008Q2

REPORT INFORMATION
  Report Type: 
  Country: None (occurrence: None)
  Receive Date: 20080428
  Receipt Date: 20080416
  Transmission Date: 20081010
  Serious: Yes (Hospitalization)
  Sender: FDA-Public Use
  Company Number: 100#08#2008-02292

PATIENT
  Age: 54 Year
  Sex: Female

DRUGS (3)
  1. CARBAMAZEPINE (CAREAMAZEPINE) [Suspect]
     Indication: CONVULSION PROPHYLAXIS
     Dosage: 600 MG REDUCED TO 200 MG
  2. BROMAZEPAM (BROMAZEPAM) [Concomitant]
  3. DIAZEPAM [Concomitant]

REACTIONS (14)
  - ANXIETY [None]
  - BLOOD POTASSIUM DECREASED [None]
  - BLOOD SODIUM DECREASED [None]
  - DISORIENTATION [None]
  - DRUG TOXICITY [None]
  - DYSARTHRIA [None]
  - GRAND MAL CONVULSION [None]
  - HEPATIC STEATOSIS [None]
  - HYPONATRAEMIA [None]
  - RENAL CYST [None]
  - RENAL IMPAIRMENT [None]
  - SLEEP DISORDER [None]
  - SUICIDAL IDEATION [None]
  - WITHDRAWAL SYNDROME [None]
